FAERS Safety Report 7016968-3 (Version None)
Quarter: 2010Q3

REPORT INFORMATION
  Report Type: 
  Country: None (occurrence: None)
  Receive Date: 20100927
  Receipt Date: 20100917
  Transmission Date: 20110219
  Serious: Yes (Hospitalization)
  Sender: FDA-Public Use
  Company Number: FR-PFIZER INC-2010117949

PATIENT
  Age: 54 Year
  Sex: Male

DRUGS (2)
  1. AMLODIPINE [Suspect]
  2. CIFLOX [Concomitant]
     Dosage: UNK
     Dates: start: 20100801, end: 20100801

REACTIONS (2)
  - CYTOLYTIC HEPATITIS [None]
  - HEPATIC FAILURE [None]
